FAERS Safety Report 6999473-X (Version None)
Quarter: 2010Q3

REPORT INFORMATION
  Report Type: 
  Country: None (occurrence: None)
  Receive Date: 20100920
  Receipt Date: 20070522
  Transmission Date: 20110219
  Serious: Yes (Other)
  Sender: FDA-Public Use
  Company Number: US-ASTRAZENECA-2006UW24111

PATIENT
  Age: 580 Month
  Sex: Female

DRUGS (18)
  1. SEROQUEL [Suspect]
     Indication: PSYCHOTIC DISORDER
     Route: 048
     Dates: start: 20010601
  2. SEROQUEL [Suspect]
     Indication: SLEEP DISORDER
     Route: 048
     Dates: start: 20010601
  3. SEROQUEL [Suspect]
     Route: 048
     Dates: start: 20030101, end: 20030901
  4. SEROQUEL [Suspect]
     Route: 048
     Dates: start: 20030101, end: 20030901
  5. SEROQUEL [Suspect]
     Dosage: 300-600 MG
     Route: 048
     Dates: start: 20030930
  6. SEROQUEL [Suspect]
     Dosage: 300-600 MG
     Route: 048
     Dates: start: 20030930
  7. ABILIFY [Suspect]
     Dates: start: 20041029
  8. RISPERDAL [Suspect]
     Route: 048
     Dates: start: 20040618
  9. ZYPREXA [Suspect]
     Indication: ANXIETY
     Dosage: 15-20 MG, BY BEDTIME
     Dates: start: 20030105, end: 20040101
  10. GEODON [Concomitant]
  11. TRILAFON [Concomitant]
  12. BUSPAR [Concomitant]
     Indication: ANXIETY
     Dosage: 30-60 MG
     Route: 048
     Dates: start: 20030105
  13. PAXIL [Concomitant]
     Indication: DEPRESSION
     Dosage: 25-500 MG
     Route: 048
     Dates: start: 20030105
  14. PAXIL [Concomitant]
     Indication: SOCIAL PHOBIA
     Dosage: 25-500 MG
     Route: 048
     Dates: start: 20030105
  15. AVIANE-28 [Concomitant]
     Indication: ORAL CONTRACEPTION
     Dosage: 1 TAB A DAY
     Dates: start: 20030105
  16. GLUCOPHAGE [Concomitant]
     Dosage: 250-500 MG
     Dates: start: 20030105
  17. NORVASC [Concomitant]
     Indication: HYPERTENSION
     Dates: start: 20030105
  18. ASPIRIN [Concomitant]
     Route: 048
     Dates: start: 20031001

REACTIONS (6)
  - DIABETES MELLITUS [None]
  - GLUCOSE TOLERANCE IMPAIRED [None]
  - KETOACIDOSIS [None]
  - SYNCOPE [None]
  - TARDIVE DYSKINESIA [None]
  - TYPE 2 DIABETES MELLITUS [None]
